FAERS Safety Report 17658980 (Version 1)
Quarter: 2020Q2

REPORT INFORMATION
  Report Type: Spontaneous
  Country: CA (occurrence: CA)
  Receive Date: 20200413
  Receipt Date: 20200413
  Transmission Date: 20200713
  Serious: Yes (Hospitalization, Other)
  Sender: FDA-Public Use
  Company Number: CA-BRISTOL-MYERS SQUIBB COMPANY-BMS-2020-029155

PATIENT
  Age: 73 Year
  Sex: Female

DRUGS (2)
  1. IMATINIB. [Suspect]
     Active Substance: IMATINIB MESYLATE
     Indication: CHRONIC MYELOID LEUKAEMIA
     Route: 065
  2. DASATINIB. [Suspect]
     Active Substance: DASATINIB
     Indication: CHRONIC MYELOID LEUKAEMIA
     Route: 065

REACTIONS (7)
  - Pulmonary hypertension [Recovered/Resolved]
  - Taste disorder [Recovered/Resolved]
  - Hypophagia [Recovered/Resolved]
  - Right ventricular dilatation [Recovered/Resolved]
  - Systolic dysfunction [Recovered/Resolved]
  - Pleural effusion [Recovered/Resolved]
  - Vertigo [Recovered/Resolved]
